FAERS Safety Report 25944032 (Version 1)
Quarter: 2025Q4

REPORT INFORMATION
  Report Type: Spontaneous
  Country: CN (occurrence: CN)
  Receive Date: 20251021
  Receipt Date: 20251021
  Transmission Date: 20260117
  Serious: Yes (Other)
  Sender: BAXTER
  Company Number: None

PATIENT
  Age: 42 Year
  Sex: Male
  Weight: 68 kg

DRUGS (9)
  1. IFOSFAMIDE [Suspect]
     Active Substance: IFOSFAMIDE
     Indication: Testicular choriocarcinoma
     Dosage: 2 G, QD
     Route: 041
     Dates: start: 20250607, end: 20250610
  2. IFOSFAMIDE [Suspect]
     Active Substance: IFOSFAMIDE
     Indication: Metastases to lung
  3. SERPLULIMAB [Suspect]
     Active Substance: SERPLULIMAB
     Indication: Testicular choriocarcinoma
     Dosage: 300 MG, QD
     Route: 041
     Dates: start: 20250607, end: 20250607
  4. SERPLULIMAB [Suspect]
     Active Substance: SERPLULIMAB
     Indication: Metastases to lung
  5. CISPLATIN [Suspect]
     Active Substance: CISPLATIN
     Indication: Testicular choriocarcinoma
     Dosage: 30 MG, QD
     Route: 041
     Dates: start: 20250607, end: 20250610
  6. CISPLATIN [Suspect]
     Active Substance: CISPLATIN
     Indication: Metastases to lung
  7. SODIUM CHLORIDE [Suspect]
     Active Substance: SODIUM CHLORIDE
     Indication: Medication dilution
     Dosage: 500 ML, QD (IFOSFAMIDE + NS)
     Route: 041
     Dates: start: 20250607, end: 20250610
  8. SODIUM CHLORIDE [Suspect]
     Active Substance: SODIUM CHLORIDE
     Dosage: 100 ML, QD (HAN SI ZHUANG + NS)
     Route: 041
     Dates: start: 20250607, end: 20250607
  9. SODIUM CHLORIDE [Suspect]
     Active Substance: SODIUM CHLORIDE
     Dosage: 250 ML, QD (CISPLATIN + NS)
     Route: 041
     Dates: start: 20250607, end: 20250610

REACTIONS (1)
  - Bicytopenia [Recovering/Resolving]

NARRATIVE: CASE EVENT DATE: 20250701
